FAERS Safety Report 6382399-2 (Version None)
Quarter: 2009Q3

REPORT INFORMATION
  Report Type: 
  Country: None (occurrence: None)
  Receive Date: 20090928
  Receipt Date: 20090928
  Transmission Date: 20100115
  Serious: Yes (Other)
  Sender: FDA-Public Use
  Company Number: None

PATIENT
  Age: 58 Year
  Sex: Male

DRUGS (1)
  1. PREGABALIN [Suspect]
     Indication: PAIN
     Dosage: 100 MG TID  PO
     Route: 048
     Dates: start: 20080125, end: 20090908

REACTIONS (1)
  - OEDEMA PERIPHERAL [None]
